FAERS Safety Report 5698042-1 (Version None)
Quarter: 2008Q2

REPORT INFORMATION
  Report Type: 
  Country: None (occurrence: None)
  Receive Date: 20080408
  Receipt Date: 20080331
  Transmission Date: 20081010
  Serious: Yes (Death)
  Sender: FDA-Public Use
  Company Number: IT-ROCHE-554233

PATIENT
  Sex: Female
  Weight: 37 kg

DRUGS (3)
  1. CAPECITABINE [Suspect]
     Route: 048
     Dates: start: 20071206, end: 20080315
  2. BEVACIZUMAB [Suspect]
     Route: 042
     Dates: start: 20071206, end: 20080315
  3. POTASSIUM CHLORIDE [Concomitant]
     Dosage: REPORTED AS 'POTASSION'
     Route: 065
     Dates: start: 20080303, end: 20080314

REACTIONS (1)
  - MYOCARDIAL ISCHAEMIA [None]
